FAERS Safety Report 5258364-5 (Version None)
Quarter: 2007Q1

REPORT INFORMATION
  Report Type: 
  Country: None (occurrence: None)
  Receive Date: 20061117
  Receipt Date: 20060327
  Transmission Date: 20070707
  Serious: Yes (Disabling)
  Sender: FDA-Public Use
  Company Number: US-JNJFOC-20060306092

PATIENT
  Sex: Female

DRUGS (1)
  1. LEVAQUIN [Suspect]
     Indication: POSTOPERATIVE CARE
     Dosage: 500 MG, 2 IN 1 DAY
     Dates: start: 20030101

REACTIONS (3)
  - ARTHRALGIA [None]
  - TENDON DISORDER [None]
  - TENDONITIS [None]
